FAERS Safety Report 25380585 (Version 1)
Quarter: 2025Q2

REPORT INFORMATION
  Report Type: Spontaneous
  Country: US (occurrence: US)
  Receive Date: 20250530
  Receipt Date: 20250530
  Transmission Date: 20250716
  Serious: Yes (Hospitalization, Other)
  Sender: UCB
  Company Number: US-UCBSA-2025031508

PATIENT
  Age: 10 Year
  Sex: Male

DRUGS (22)
  1. LEVETIRACETAM [Suspect]
     Active Substance: LEVETIRACETAM
     Indication: Generalised tonic-clonic seizure
  2. LEVETIRACETAM [Suspect]
     Active Substance: LEVETIRACETAM
     Indication: Status epilepticus
  3. LEVETIRACETAM [Suspect]
     Active Substance: LEVETIRACETAM
     Indication: Off label use
  4. LACOSAMIDE [Suspect]
     Active Substance: LACOSAMIDE
     Indication: Status epilepticus
  5. BRIVARACETAM [Suspect]
     Active Substance: BRIVARACETAM
     Indication: Status epilepticus
  6. MIDAZOLAM [Suspect]
     Active Substance: MIDAZOLAM
     Indication: Anaesthesia
     Route: 042
  7. MIDAZOLAM [Suspect]
     Active Substance: MIDAZOLAM
     Indication: Off label use
  8. FOSPHENYTOIN [Suspect]
     Active Substance: FOSPHENYTOIN
     Indication: Status epilepticus
  9. PERAMPANEL [Suspect]
     Active Substance: PERAMPANEL
     Indication: Status epilepticus
  10. CLOBAZAM [Suspect]
     Active Substance: CLOBAZAM
     Indication: Status epilepticus
  11. FELBAMATE [Suspect]
     Active Substance: FELBAMATE
     Indication: Status epilepticus
  12. GANAXOLONE [Suspect]
     Active Substance: GANAXOLONE
     Indication: Status epilepticus
  13. CENOBAMATE [Suspect]
     Active Substance: CENOBAMATE
     Indication: Status epilepticus
  14. METHYLPREDNISOLONE [Concomitant]
     Active Substance: METHYLPREDNISOLONE
     Indication: Immunodeficiency
     Dosage: 1 GRAM, 3X/DAY (TID)
     Route: 042
  15. ANAKINRA [Concomitant]
     Active Substance: ANAKINRA
     Indication: Immunodeficiency
  16. ANAKINRA [Concomitant]
     Active Substance: ANAKINRA
  17. TOCILIZUMAB [Concomitant]
     Active Substance: TOCILIZUMAB
     Indication: Immunodeficiency
     Dosage: 8 MILLIGRAM/KILOGRAM, ONCE DAILY (QD)
  18. BARICITINIB [Concomitant]
     Active Substance: BARICITINIB
     Indication: Immunodeficiency
  19. BARICITINIB [Concomitant]
     Active Substance: BARICITINIB
  20. IMMUNE GLOBULIN NOS [Concomitant]
     Active Substance: IMMUNE GLOBULIN NOS
     Indication: Immunodeficiency
     Route: 042
  21. PENTOBARBITAL [Concomitant]
     Active Substance: PENTOBARBITAL
     Indication: Anaesthesia
     Route: 042
  22. KETAMINE [Concomitant]
     Active Substance: KETAMINE
     Indication: Product used for unknown indication
     Route: 042

REACTIONS (8)
  - Pneumonia [Unknown]
  - Bacteraemia [Unknown]
  - Drug-induced liver injury [Unknown]
  - Hospitalisation [Unknown]
  - Urinary tract infection [Unknown]
  - Tracheitis [Unknown]
  - Antimicrobial susceptibility test resistant [Unknown]
  - Off label use [Unknown]
